FAERS Safety Report 22354935 (Version 1)
Quarter: 2023Q2

REPORT INFORMATION
  Report Type: Report from Study
  Country: IT (occurrence: IT)
  Receive Date: 20230523
  Receipt Date: 20230523
  Transmission Date: 20230721
  Serious: Yes (Hospitalization)
  Sender: FDA-Public Use
  Company Number: None

PATIENT
  Age: 49 Year
  Sex: Female

DRUGS (2)
  1. AMOXICILLIN [Suspect]
     Active Substance: AMOXICILLIN
     Indication: Product used for unknown indication
     Dosage: DOSAGE: 1 UNIT OF MEASURE: DOSING UNIT FREQUENCY OF ADMINISTRATION: TOTAL ROUTE OF ADMINISTRATION: O
     Route: 048
     Dates: start: 20230114, end: 20230114
  2. Esomeprazole MAGNESIUM TRHYDRATE [Concomitant]
     Indication: Product used for unknown indication
     Dosage: ESOMEPRAZOLO MAGNESIO TRIIDRATO

REACTIONS (3)
  - Vomiting [Recovered/Resolved]
  - Abdominal rebound tenderness [Recovered/Resolved]
  - Malaise [Recovered/Resolved]

NARRATIVE: CASE EVENT DATE: 20230114
